FAERS Safety Report 8850453 (Version 2)
Quarter: 2012Q4

REPORT INFORMATION
  Report Type: 
  Country: CN (occurrence: CN)
  Receive Date: 20121019
  Receipt Date: 20121102
  Transmission Date: 20130627
  Serious: Yes (Other)
  Sender: FDA-Public Use
  Company Number: CN-ABBOTT-12P-035-0996401-00

PATIENT
  Age: 27 Year
  Sex: Male

DRUGS (5)
  1. VALPROATE [Suspect]
     Indication: EPILEPSY
     Route: 048
  2. VALPROATE [Suspect]
     Route: 048
  3. VALPROATE [Suspect]
  4. GANCICLOVIR [Concomitant]
     Indication: PRODUCT USED FOR UNKNOWN INDICATION
  5. MANNITOL [Concomitant]

REACTIONS (10)
  - Slow response to stimuli [Unknown]
  - Hyperammonaemic encephalopathy [Recovered/Resolved]
  - Confusional state [Unknown]
  - Restlessness [Unknown]
  - Electroencephalogram abnormal [Unknown]
  - Pupillary reflex impaired [Unknown]
  - Muscle twitching [Unknown]
  - Coma [Recovered/Resolved]
  - Eye movement disorder [Unknown]
  - Mydriasis [Unknown]
